FAERS Safety Report 7457713-7 (Version None)
Quarter: 2011Q2

REPORT INFORMATION
  Report Type: 
  Country: None (occurrence: None)
  Receive Date: 20110504
  Receipt Date: 20110503
  Transmission Date: 20111010
  Serious: Yes (Death, Hospitalization, Other)
  Sender: FDA-Public Use
  Company Number: HU-ROCHE-772422

PATIENT
  Sex: Female
  Weight: 116 kg

DRUGS (14)
  1. FOLIC ACID [Concomitant]
     Route: 048
     Dates: start: 20100920
  2. NEBIVOLOL [Concomitant]
     Indication: HYPERTENSION
     Route: 048
     Dates: start: 20050101
  3. ALPRAZOLAM [Concomitant]
     Indication: DEPRESSION
     Route: 048
     Dates: start: 20050101
  4. METFORMIN HYDROCHLORIDE [Concomitant]
     Indication: DIABETES MELLITUS
     Route: 048
     Dates: start: 20010101
  5. SIMVASTATIN [Concomitant]
     Indication: HYPERLIPIDAEMIA
     Route: 048
     Dates: start: 20100112
  6. METHYLPREDNISOLONE [Suspect]
     Indication: RHEUMATOID ARTHRITIS
     Route: 048
     Dates: start: 20050101, end: 20110301
  7. FRUSEMID [Concomitant]
     Indication: HYPERTENSION
     Route: 048
     Dates: start: 20050101
  8. HUMAN ACTRAPID [Concomitant]
     Indication: DIABETES MELLITUS
     Dosage: R: 24E D:22E E: 22E DAILY
     Route: 058
     Dates: start: 20060101
  9. KALIUM [Concomitant]
     Route: 048
     Dates: start: 20080101
  10. TOCILIZUMAB [Suspect]
     Indication: RHEUMATOID ARTHRITIS
     Route: 042
     Dates: start: 20101215, end: 20110318
  11. AMLODIPINE [Concomitant]
     Indication: HYPERTENSION
     Dosage: 2X5MG DAILY
     Route: 048
     Dates: start: 20070101
  12. INSULATARD [Concomitant]
     Dosage: E: 22E DAILY
     Route: 058
     Dates: start: 20060101
  13. LISINOPRIL [Concomitant]
     Indication: HYPERTENSION
     Dosage: 2X 10MG DAILY
     Route: 048
     Dates: start: 20070101
  14. NAPROXEN [Concomitant]
     Route: 048
     Dates: start: 20110303

REACTIONS (5)
  - VIRAL INFECTION [None]
  - LIVER FUNCTION TEST ABNORMAL [None]
  - BACK PAIN [None]
  - ERYSIPELAS [None]
  - PNEUMONIA [None]
